FAERS Safety Report 4946017-X (Version None)
Quarter: 2006Q1

REPORT INFORMATION
  Report Type: 
  Country: None (occurrence: None)
  Receive Date: 20060316
  Receipt Date: 20041012
  Transmission Date: 20060701
  Serious: Yes (Hospitalization)
  Sender: FDA-Public Use
  Company Number: US-MERCK-0410USA01961

PATIENT
  Age: 67 Year
  Sex: Male
  Weight: 81 kg

DRUGS (6)
  1. VIOXX [Suspect]
     Indication: RHEUMATOID ARTHRITIS
     Route: 048
     Dates: start: 20011201, end: 20031215
  2. PREDNISONE [Concomitant]
     Route: 065
  3. METHOTREXATE [Concomitant]
     Indication: RHEUMATOID ARTHRITIS
     Route: 048
     Dates: start: 20010301, end: 20030701
  4. HYDROXYCHLOROQUINE SULFATE [Concomitant]
     Route: 065
  5. ZOLOFT [Concomitant]
     Indication: STRESS
     Route: 048
     Dates: start: 20030501
  6. ZOLOFT [Concomitant]
     Indication: IRRITABILITY
     Route: 048
     Dates: start: 20030501

REACTIONS (5)
  - CHEST PAIN [None]
  - CORONARY ARTERY DISEASE [None]
  - DRESSLER'S SYNDROME [None]
  - MYOCARDIAL INFARCTION [None]
  - PNEUMONIA [None]
